FAERS Safety Report 4364726-0 (Version None)
Quarter: 2004Q2

REPORT INFORMATION
  Report Type: 
  Country: None (occurrence: None)
  Receive Date: 20040518
  Receipt Date: 20040123
  Transmission Date: 20050107
  Serious: No
  Sender: FDA-Public Use
  Company Number: APP200400112(0)

PATIENT
  Age: 67 Year
  Sex: Female
  Weight: 70.7611 kg

DRUGS (16)
  1. VANCOMYCIN HYDROCHLORIDE [Suspect]
     Indication: INFECTION
     Dosage: 1 GM (1 GM, 1 IN 12
     Dates: start: 20031107, end: 20031119
  2. VANCOMYCIN HYDROCHLORIDE [Suspect]
  3. VANCOMYCIN HYDROCHLORIDE [Suspect]
  4. VANCOMYCIN HYDROCHLORIDE [Suspect]
  5. VANCOMYCIN HYDROCHLORIDE [Suspect]
  6. RIFAMPICIN [Concomitant]
  7. DEXAMETHASONE [Concomitant]
  8. REGLAN [Concomitant]
  9. ALTACE [Concomitant]
  10. PROCARDIA (NIFEDPINE) [Concomitant]
  11. CEFAZOLIN [Concomitant]
  12. GATIFLOXACIN [Concomitant]
  13. METOPROLOL (METOPROLOL) [Concomitant]
  14. ENALAPRILAT (ENALAPRILAT) [Concomitant]
  15. COREG [Concomitant]
  16. FLUCONAZOLE [Concomitant]

REACTIONS (1)
  - WHITE BLOOD CELL COUNT DECREASED [None]
